FAERS Safety Report 5036994-3 (Version None)
Quarter: 2006Q2

REPORT INFORMATION
  Report Type: 
  Country: None (occurrence: None)
  Receive Date: 20060601
  Receipt Date: 20060130
  Transmission Date: 20061013
  Serious: Yes (Other)
  Sender: FDA-Public Use
  Company Number: US200602001080

PATIENT
  Sex: Male

DRUGS (2)
  1. CYMBALTA [Suspect]
     Dosage: 30 MG, DAILY (1/D), ORAL
     Route: 048
     Dates: start: 20060109
  2. SERZONE [Concomitant]

REACTIONS (1)
  - ERECTION INCREASED [None]
